FAERS Safety Report 6704157-9 (Version None)
Quarter: 2010Q2

REPORT INFORMATION
  Report Type: 
  Country: None (occurrence: None)
  Receive Date: 20100430
  Receipt Date: 20100415
  Transmission Date: 20101027
  Serious: Yes (Death, Hospitalization)
  Sender: FDA-Public Use
  Company Number: ES-ALEXION-A201000404

PATIENT
  Sex: Male

DRUGS (4)
  1. SOLIRIS [Suspect]
     Indication: PAROXYSMAL NOCTURNAL HAEMOGLOBINURIA
     Dosage: 600 MG, QW
     Route: 042
     Dates: start: 20091023
  2. SOLIRIS [Suspect]
     Dosage: 900 MG, Q2W
     Route: 042
     Dates: start: 20091120
  3. RIVAROXABAN [Concomitant]
     Indication: THROMBOSIS PROPHYLAXIS
     Dosage: 10 MG, QD
     Dates: start: 20100101, end: 20100404
  4. FOLIC ACID [Concomitant]

REACTIONS (3)
  - DISSEMINATED INTRAVASCULAR COAGULATION [None]
  - MENINGOCOCCAL SEPSIS [None]
  - STAPHYLOCOCCAL SEPSIS [None]
